FAERS Safety Report 15497068 (Version 13)
Quarter: 2019Q2

REPORT INFORMATION
  Report Type: Report from Study
  Country: CN (occurrence: CN)
  Receive Date: 20181015
  Receipt Date: 20190412
  Transmission Date: 20190711
  Serious: Yes (Hospitalization)
  Sender: FDA-Public Use
  Company Number: CN-ROCHE-2197164

PATIENT
  Age: 75 Year
  Sex: Male
  Weight: 58 kg

DRUGS (12)
  1. ENOXAPARIN SODIUM. [Concomitant]
     Active Substance: ENOXAPARIN SODIUM
     Indication: VENOUS THROMBOSIS
     Route: 058
     Dates: start: 20190220, end: 20190221
  2. FILGRASTIM [Concomitant]
     Active Substance: FILGRASTIM
     Route: 058
     Dates: start: 20181022, end: 20181022
  3. GEMCITABINE [Suspect]
     Active Substance: GEMCITABINE\GEMCITABINE HYDROCHLORIDE
     Indication: TRANSITIONAL CELL CARCINOMA
     Dosage: MOST RECENT DOSE OF GEMCITABINE (1600 MG) PRIOR TO AE ONSET ON 06/SEP/2018?MOST RECENT DOSE OF GEMCI
     Route: 042
     Dates: start: 20180625
  4. FILGRASTIM [Concomitant]
     Active Substance: FILGRASTIM
     Indication: LEUKOPENIA
     Route: 058
     Dates: start: 20180829, end: 20180829
  5. ATEZOLIZUMAB. [Suspect]
     Active Substance: ATEZOLIZUMAB
     Indication: TRANSITIONAL CELL CARCINOMA
     Dosage: MOST RECENT DOSE OF BLINDED ATEZOLIZUMAB TO AE ONSET ON 29/AUG/2018
     Route: 042
     Dates: start: 20180625
  6. CELECOXIB. [Concomitant]
     Active Substance: CELECOXIB
     Indication: PAIN IN EXTREMITY
     Route: 048
     Dates: start: 20190216, end: 20190223
  7. PALONOSETRON HYDROCHLORIDE. [Concomitant]
     Active Substance: PALONOSETRON HYDROCHLORIDE
     Route: 042
     Dates: start: 20181022, end: 20181022
  8. BENZALKONIUM CHLORIDE. [Concomitant]
     Active Substance: BENZALKONIUM CHLORIDE
     Route: 061
     Dates: start: 20180626
  9. ONDANSETRON HYDROCHLORIDE. [Concomitant]
     Active Substance: ONDANSETRON HYDROCHLORIDE
     Indication: VOMITING
     Route: 048
     Dates: start: 20180829, end: 20180829
  10. CISPLATIN. [Suspect]
     Active Substance: CISPLATIN
     Indication: TRANSITIONAL CELL CARCINOMA
     Dosage: MOST RECENT DOSE OF CISPLATIN (112 MG) PRIOR TO AE ONSET ON 29/AUG/2018 (LUNG INFECTION)?MOST RECENT
     Route: 042
     Dates: start: 20180625
  11. PALONOSETRON HYDROCHLORIDE. [Concomitant]
     Active Substance: PALONOSETRON HYDROCHLORIDE
     Indication: VOMITING
     Route: 042
     Dates: start: 20180829, end: 20180829
  12. DEXAMETHASONE SODIUM PHOSPHATE. [Concomitant]
     Active Substance: DEXAMETHASONE SODIUM PHOSPHATE
     Route: 042
     Dates: start: 20181022, end: 20181022

REACTIONS (3)
  - Malaise [Recovered/Resolved]
  - Lung infection [Recovered/Resolved]
  - Vomiting [Recovered/Resolved]

NARRATIVE: CASE EVENT DATE: 20180907
